FAERS Safety Report 15999611 (Version 1)
Quarter: 2019Q1

REPORT INFORMATION
  Report Type: Spontaneous
  Country: US (occurrence: US)
  Receive Date: 20190223
  Receipt Date: 20190223
  Transmission Date: 20190418
  Serious: No
  Sender: FDA-Public Use
  Company Number: None

PATIENT
  Age: 25 Year
  Sex: Female
  Weight: 112.5 kg

DRUGS (1)
  1. AIMOVIG [Suspect]
     Active Substance: ERENUMAB-AOOE

REACTIONS (5)
  - Constipation [None]
  - Vertigo [None]
  - Weight increased [None]
  - Alopecia [None]
  - Headache [None]

NARRATIVE: CASE EVENT DATE: 20190206
